FAERS Safety Report 11525571 (Version 1)
Quarter: 2015Q3

REPORT INFORMATION
  Report Type: Spontaneous
  Country: US (occurrence: US)
  Receive Date: 20150918
  Receipt Date: 20150918
  Transmission Date: 20151125
  Serious: Yes (Other)
  Sender: FDA-Public Use
  Company Number: US-TAKEDA-TPA2012A01946

PATIENT

DRUGS (6)
  1. METFORMIN [Concomitant]
     Active Substance: METFORMIN HYDROCHLORIDE
     Route: 065
  2. STARLIX [Concomitant]
     Active Substance: NATEGLINIDE
     Route: 065
  3. LISPRO (HUMALOG) [Concomitant]
     Route: 065
  4. ACTOS [Suspect]
     Active Substance: PIOGLITAZONE HYDROCHLORIDE
     Indication: TYPE 2 DIABETES MELLITUS
     Route: 065
     Dates: start: 20060412, end: 20080622
  5. GLARGINE/LANTUS [Concomitant]
     Route: 065
  6. JANUVIA [Concomitant]
     Active Substance: SITAGLIPTIN PHOSPHATE
     Route: 065

REACTIONS (8)
  - Prostate infection [Unknown]
  - Myocardial infarction [Unknown]
  - Kidney infection [Unknown]
  - Prosthesis user [Unknown]
  - Peripheral swelling [Unknown]
  - Urinary tract infection [Unknown]
  - Blood urine present [Unknown]
  - Cerebrovascular accident [Unknown]
